FAERS Safety Report 5569807-1 (Version None)
Quarter: 2007Q4

REPORT INFORMATION
  Report Type: 
  Country: None (occurrence: None)
  Receive Date: 20071218
  Receipt Date: 20071211
  Transmission Date: 20080405
  Serious: Yes (Death, Other)
  Sender: FDA-Public Use
  Company Number: 163-21880-07110878

PATIENT
  Age: 65 Year
  Sex: Male

DRUGS (20)
  1. REVLIMID [Suspect]
     Indication: MULTIPLE MYELOMA
     Dosage: 15 MG, DAYS 1-14, ORAL
     Route: 048
     Dates: start: 20070919, end: 20071110
  2. DEXAMETHASONE TAB [Suspect]
     Indication: MULTIPLE MYELOMA
     Dosage: 20 MG, DAYS 1,2,4,5,8,9,11,12, ORAL
     Route: 048
     Dates: start: 20070919, end: 20071110
  3. VELCADE [Concomitant]
  4. LOPRESSOR [Concomitant]
  5. MEPRON [Concomitant]
  6. NORVASC [Concomitant]
  7. OMEPRAZOLE [Concomitant]
  8. OXYCODONE HCL [Concomitant]
  9. THYROID TAB [Concomitant]
  10. RITALIN [Concomitant]
  11. LOMOTIL [Concomitant]
  12. LASIX [Concomitant]
  13. HYDROCHLOROTHIAZIDE [Concomitant]
  14. FOLIC ACID [Concomitant]
  15. FLUCONAZOLE [Concomitant]
  16. FAMVIR [Concomitant]
  17. CELEXA [Concomitant]
  18. AREDIA [Concomitant]
  19. ALLOPURINOL [Concomitant]
  20. BORTEZOMIB (BORTEZOMIB) [Suspect]
     Indication: MULTIPLE MYELOMA
     Dosage: 2.3 MG, DAYS 1,4,8,11, INTRAVENOUS
     Route: 042
     Dates: start: 20070919, end: 20071109

REACTIONS (8)
  - FEBRILE NEUTROPENIA [None]
  - MALIGNANT NEOPLASM PROGRESSION [None]
  - MULTIPLE MYELOMA [None]
  - NEPHROSCLEROSIS [None]
  - PLEURAL EFFUSION [None]
  - PNEUMONIA FUNGAL [None]
  - PULMONARY ALVEOLAR HAEMORRHAGE [None]
  - SEPTIC SHOCK [None]
